FAERS Safety Report 6036368-2 (Version None)
Quarter: 2009Q1

REPORT INFORMATION
  Report Type: 
  Country: None (occurrence: None)
  Receive Date: 20090113
  Receipt Date: 20090109
  Transmission Date: 20090719
  Serious: Yes (Hospitalization)
  Sender: FDA-Public Use
  Company Number: CH-MERCK-0811CHE00014

PATIENT
  Age: 60 Year
  Sex: Male

DRUGS (2)
  1. EMEND [Suspect]
     Indication: PROPHYLAXIS OF NAUSEA AND VOMITING
     Route: 048
     Dates: end: 20080101
  2. ANTINEOPLASTIC (UNSPECIFIED) [Concomitant]
     Indication: RECTAL CANCER
     Route: 065
     Dates: end: 20080101

REACTIONS (1)
  - GASTROINTESTINAL NECROSIS [None]
